FAERS Safety Report 21414074 (Version 1)
Quarter: 2022Q4

REPORT INFORMATION
  Report Type: Spontaneous
  Country: US (occurrence: US)
  Receive Date: 20221006
  Receipt Date: 20221006
  Transmission Date: 20230113
  Serious: No
  Sender: FDA-Public Use
  Company Number: US-ALLERGAN-2225273US

PATIENT
  Sex: Female

DRUGS (1)
  1. QULIPTA [Suspect]
     Active Substance: ATOGEPANT
     Indication: Migraine
     Dosage: 60 MG, QD
     Route: 048
     Dates: start: 20220719, end: 20220801

REACTIONS (6)
  - Pain [Recovering/Resolving]
  - Muscle spasms [Recovered/Resolved]
  - Blood urine present [Recovered/Resolved]
  - Myalgia [Recovered/Resolved]
  - Influenza like illness [Unknown]
  - Basedow^s disease [Unknown]

NARRATIVE: CASE EVENT DATE: 20220101
